FAERS Safety Report 12540999 (Version 4)
Quarter: 2018Q4

REPORT INFORMATION
  Report Type: Spontaneous
  Country: US (occurrence: US)
  Receive Date: 20160708
  Receipt Date: 20181113
  Transmission Date: 20190204
  Serious: Yes (Hospitalization, Other)
  Sender: FDA-Public Use
  Company Number: US-DSJP-DSU-2016-121505

PATIENT

DRUGS (5)
  1. BENICAR [Suspect]
     Active Substance: OLMESARTAN MEDOXOMIL
     Dosage: 40 MG, QD
     Route: 048
     Dates: start: 20090502, end: 20120813
  2. CRESTOR [Concomitant]
     Active Substance: ROSUVASTATIN CALCIUM
     Indication: BLOOD CHOLESTEROL
     Dosage: 20 MG, QD
     Route: 048
  3. BENICAR [Suspect]
     Active Substance: OLMESARTAN MEDOXOMIL
     Indication: HYPERTENSION
     Dosage: 20 MG, QD
     Route: 048
     Dates: start: 20090502, end: 20120813
  4. THYROXINE [Concomitant]
     Active Substance: LEVOTHYROXINE
     Indication: THYROID DISORDER
     Dosage: UNK
  5. BENICAR [Suspect]
     Active Substance: OLMESARTAN MEDOXOMIL
     Dosage: 20 MG HALF DAILY, QD

REACTIONS (13)
  - Acute kidney injury [Recovering/Resolving]
  - Confusional state [Not Recovered/Not Resolved]
  - Polyp [Recovered/Resolved]
  - Hypotension [Recovered/Resolved]
  - Sprue-like enteropathy [Recovering/Resolving]
  - Colitis ulcerative [Unknown]
  - Libido decreased [Not Recovered/Not Resolved]
  - Product administration error [Unknown]
  - Protein-losing gastroenteropathy [Recovered/Resolved]
  - Clostridium difficile infection [Recovered/Resolved]
  - Immune system disorder [Not Recovered/Not Resolved]
  - Muscle atrophy [Unknown]
  - Diverticulum intestinal [Not Recovered/Not Resolved]

NARRATIVE: CASE EVENT DATE: 201010
